FAERS Safety Report 25405481 (Version 1)
Quarter: 2025Q2

REPORT INFORMATION
  Report Type: Spontaneous
  Country: US (occurrence: US)
  Receive Date: 20250606
  Receipt Date: 20250606
  Transmission Date: 20250716
  Serious: Yes (Other)
  Sender: Kenvue
  Company Number: US-KENVUE-20250600454

PATIENT
  Age: 27 Year
  Sex: Female

DRUGS (2)
  1. TYLENOL EXTRA STRENGTH [Suspect]
     Active Substance: ACETAMINOPHEN
     Indication: Migraine
     Dosage: 1 DOSAGE FORM, TWICE A DAY
     Route: 065
     Dates: start: 20250528, end: 202505
  2. TYLENOL EXTRA STRENGTH [Suspect]
     Active Substance: ACETAMINOPHEN
     Indication: Headache

REACTIONS (4)
  - Pharyngeal swelling [Recovering/Resolving]
  - Oropharyngeal pain [Recovering/Resolving]
  - Incorrect dose administered [Unknown]
  - Swollen tongue [Recovering/Resolving]

NARRATIVE: CASE EVENT DATE: 20250528
